FAERS Safety Report 17174391 (Version 1)
Quarter: 2019Q4

REPORT INFORMATION
  Report Type: Spontaneous
  Country: US (occurrence: US)
  Receive Date: 20191126
  Receipt Date: 20191126
  Transmission Date: 20200122
  Serious: No
  Sender: FDA-Public Use
  Company Number: None

PATIENT
  Age: 79 Year
  Sex: Male

DRUGS (14)
  1. MAGNESIUM [Concomitant]
     Active Substance: MAGNESIUM
  2. XTANDI [Concomitant]
     Active Substance: ENZALUTAMIDE
  3. ATORVASTATIN [Concomitant]
     Active Substance: ATORVASTATIN
  4. OMEGA 3 [Concomitant]
     Active Substance: OMEGA-3 FATTY ACIDS
  5. PREDNISONE. [Concomitant]
     Active Substance: PREDNISONE
  6. ERLEADA [Suspect]
     Active Substance: APALUTAMIDE
     Indication: METASTASES TO BONE
     Route: 048
     Dates: start: 20191004
  7. ZINC. [Concomitant]
     Active Substance: ZINC
  8. FLAXSEED [Concomitant]
     Active Substance: FLAX SEED
  9. CALCIUM [Concomitant]
     Active Substance: CALCIUM
  10. SINUS RINSE [Concomitant]
     Active Substance: SODIUM BICARBONATE\SODIUM CHLORIDE
  11. PROCHLOROPERAZINE [Concomitant]
     Active Substance: PROCHLORPERAZINE
  12. LISINOPRIL. [Concomitant]
     Active Substance: LISINOPRIL
  13. IPRATROPIUM [Concomitant]
     Active Substance: IPRATROPIUM
  14. VITAMIN D3 [Concomitant]
     Active Substance: CHOLECALCIFEROL

REACTIONS (1)
  - Drug ineffective [None]
